FAERS Safety Report 16476347 (Version 1)
Quarter: 2019Q2

REPORT INFORMATION
  Report Type: Report from Study
  Country: None (occurrence: US)
  Receive Date: 20190626
  Receipt Date: 20190626
  Transmission Date: 20190711
  Serious: Yes (Hospitalization, Other)
  Sender: FDA-Public Use
  Company Number: US-ABBVIE-19K-163-2828978-00

PATIENT
  Age: 56 Year
  Sex: Female

DRUGS (2)
  1. ARAVA [Concomitant]
     Active Substance: LEFLUNOMIDE
     Indication: PRODUCT USED FOR UNKNOWN INDICATION
  2. HUMIRA [Suspect]
     Active Substance: ADALIMUMAB
     Indication: RHEUMATOID ARTHRITIS
     Route: 058

REACTIONS (5)
  - Deep vein thrombosis [Recovered/Resolved]
  - Hypoglycaemia [Unknown]
  - Intracardiac thrombus [Unknown]
  - Diabetes mellitus [Unknown]
  - Cataract [Unknown]

NARRATIVE: CASE EVENT DATE: 20190618
